FAERS Safety Report 21734653 (Version 1)
Quarter: 2022Q4

REPORT INFORMATION
  Report Type: Spontaneous
  Country: US (occurrence: None)
  Receive Date: 20221215
  Receipt Date: 20221215
  Transmission Date: 20230113
  Serious: Yes (Life-Threatening, Hospitalization)
  Sender: FDA-Public Use
  Company Number: None

PATIENT
  Age: 72 Year
  Sex: Female

DRUGS (1)
  1. CEFAZOLIN [Suspect]
     Active Substance: CEFAZOLIN
     Indication: Postoperative care
     Dosage: FREQUENCY : 3 TIMES A DAY;?
     Route: 040
     Dates: end: 20221007

REACTIONS (3)
  - Respiratory failure [None]
  - Anaphylactic reaction [None]
  - Acute myocardial infarction [None]

NARRATIVE: CASE EVENT DATE: 20221006
